FAERS Safety Report 12483185 (Version 3)
Quarter: 2016Q3

REPORT INFORMATION
  Report Type: Report from Study
  Country: BR (occurrence: BR)
  Receive Date: 20160621
  Receipt Date: 20160816
  Transmission Date: 20161109
  Serious: Yes (Other)
  Sender: FDA-Public Use
  Company Number: BR-BRISTOL-MYERS SQUIBB COMPANY-BMS-2016-007411

PATIENT
  Age: 54 Year
  Sex: Female

DRUGS (5)
  1. TECNOMET                           /00113801/ [Concomitant]
     Active Substance: METHOTREXATE
     Indication: PRODUCT USED FOR UNKNOWN INDICATION
     Route: 065
  2. AMIODARONE                         /00133102/ [Concomitant]
     Active Substance: AMIODARONE
     Indication: PRODUCT USED FOR UNKNOWN INDICATION
     Dosage: 200 MG, UNK
     Route: 065
  3. ABATACEPT [Suspect]
     Active Substance: ABATACEPT
     Indication: RHEUMATOID ARTHRITIS
     Dosage: 250 MG, QMO
     Route: 042
     Dates: start: 201509
  4. SPIRONOLACTONE. [Concomitant]
     Active Substance: SPIRONOLACTONE
     Indication: PRODUCT USED FOR UNKNOWN INDICATION
     Dosage: 25 MG, UNK
     Route: 065
  5. FOLIC ACID. [Concomitant]
     Active Substance: FOLIC ACID
     Indication: PRODUCT USED FOR UNKNOWN INDICATION
     Route: 065

REACTIONS (14)
  - Respiratory tract infection [Recovering/Resolving]
  - Dry eye [Unknown]
  - Gastrointestinal disorder [Recovering/Resolving]
  - Abdominal pain [Unknown]
  - Respiratory disorder [Unknown]
  - Rash [Recovering/Resolving]
  - Urticaria [Recovering/Resolving]
  - Dry mouth [Unknown]
  - Sjogren^s syndrome [Unknown]
  - Sialoadenitis [Recovering/Resolving]
  - Hyperhidrosis [Unknown]
  - Diarrhoea [Not Recovered/Not Resolved]
  - Oropharyngeal pain [Unknown]
  - Dizziness [Unknown]

NARRATIVE: CASE EVENT DATE: 201602
